FAERS Safety Report 8472398-9 (Version None)
Quarter: 2012Q2

REPORT INFORMATION
  Report Type: 
  Country: None (occurrence: None)
  Receive Date: 20120627
  Receipt Date: 20110622
  Transmission Date: 20120825
  Serious: No
  Sender: FDA-Public Use
  Company Number: US-AMGEN-USASP2011032437

PATIENT
  Age: 78 Year
  Sex: Male
  Weight: 108.84 kg

DRUGS (2)
  1. PRILOSEC [Concomitant]
     Dosage: UNK
     Route: 048
  2. PROCRIT [Suspect]
     Indication: ANAEMIA OF MALIGNANT DISEASE
     Dosage: UNK
     Route: 058

REACTIONS (2)
  - MALAISE [None]
  - HAEMOGLOBIN ABNORMAL [None]
